FAERS Safety Report 5211004-3 (Version None)
Quarter: 2006Q4

REPORT INFORMATION
  Report Type: 
  Country: None (occurrence: None)
  Receive Date: 20061114
  Receipt Date: 20060803
  Transmission Date: 20070319
  Serious: No
  Sender: FDA-Public Use
  Company Number: S06-USA-03177-01

PATIENT
  Age: 84 Year
  Sex: Female

DRUGS (12)
  1. NAMENDA [Suspect]
     Indication: MEMORY IMPAIRMENT
     Dosage: 15 MG QD PO
     Route: 048
     Dates: start: 20060617, end: 20060623
  2. NAMENDA [Suspect]
     Indication: MEMORY IMPAIRMENT
     Dosage: 10 MG BID PO
     Route: 048
     Dates: start: 20060624
  3. XALATAN [Concomitant]
  4. DIGOXIN [Concomitant]
  5. COREG [Concomitant]
  6. PREVACID [Concomitant]
  7. LASIX [Concomitant]
  8. MEGESTROL ACETATE [Concomitant]
  9. NORVASC [Concomitant]
  10. VITAMINS NOS [Concomitant]
  11. NAMENDA [Suspect]
     Indication: MEMORY IMPAIRMENT
     Dosage: 5 MG QD PO
     Route: 048
     Dates: start: 20060603, end: 20060609
  12. NAMENDA [Suspect]
     Indication: MEMORY IMPAIRMENT
     Dosage: 5 MG BID PO
     Route: 048
     Dates: start: 20060610, end: 20060616

REACTIONS (2)
  - DIZZINESS [None]
  - VERTIGO [None]
